FAERS Safety Report 16088965 (Version 1)
Quarter: 2019Q1

REPORT INFORMATION
  Report Type: Spontaneous
  Country: US (occurrence: US)
  Receive Date: 20190319
  Receipt Date: 20190319
  Transmission Date: 20190418
  Serious: No
  Sender: FDA-Public Use
  Company Number: US-ELI_LILLY_AND_COMPANY-US201903008777

PATIENT
  Sex: Female

DRUGS (3)
  1. HUMALOG [Suspect]
     Active Substance: INSULIN LISPRO
     Indication: TYPE 1 DIABETES MELLITUS
     Dosage: 2 IU, PRN
     Route: 058
  2. HUMULIN N [Concomitant]
     Active Substance: INSULIN HUMAN
     Dosage: 6.5 IU, EACH EVENING (6-6.5)
     Route: 065
  3. HUMULIN N [Concomitant]
     Active Substance: INSULIN HUMAN
     Indication: TYPE 1 DIABETES MELLITUS
     Dosage: 11 IU, EACH MORNING
     Route: 065

REACTIONS (3)
  - Blood glucose decreased [Recovered/Resolved]
  - Headache [Not Recovered/Not Resolved]
  - Blood glucose increased [Not Recovered/Not Resolved]
